FAERS Safety Report 5964689-8 (Version None)
Quarter: 2008Q4

REPORT INFORMATION
  Report Type: 
  Country: None (occurrence: None)
  Receive Date: 20081125
  Receipt Date: 20080527
  Transmission Date: 20090506
  Serious: Yes (Death, Life-Threatening, Hospitalization)
  Sender: FDA-Public Use
  Company Number: FR-CELGENEUS-056-C5013-07050798

PATIENT
  Sex: Male
  Weight: 76 kg

DRUGS (4)
  1. REVLIMID [Suspect]
     Indication: MYELODYSPLASTIC SYNDROME
     Route: 048
     Dates: start: 20060506
  2. REVLIMID [Suspect]
     Route: 048
     Dates: start: 20060504, end: 20070516
  3. REVLIMID [Suspect]
     Indication: MYELODYSPLASTIC SYNDROME
     Route: 048
     Dates: start: 20051216
  4. FLUOROQUINOLONE [Concomitant]
     Indication: INFECTION
     Route: 051
     Dates: start: 20070516, end: 20070517

REACTIONS (6)
  - ACUTE RESPIRATORY DISTRESS SYNDROME [None]
  - BRONCHITIS [None]
  - CARDIAC ARREST [None]
  - COAGULOPATHY [None]
  - INFECTION [None]
  - PULMONARY HAEMORRHAGE [None]
